FAERS Safety Report 5584318-5 (Version None)
Quarter: 2008Q1

REPORT INFORMATION
  Report Type: 
  Country: None (occurrence: None)
  Receive Date: 20080108
  Receipt Date: 20080103
  Transmission Date: 20080703
  Serious: Yes (Hospitalization)
  Sender: FDA-Public Use
  Company Number: SE-ASTRAZENECA-2008SE00062

PATIENT
  Age: 90 Year
  Sex: Female

DRUGS (9)
  1. METOPROLOL SUCCINATE [Suspect]
     Indication: ATRIAL FIBRILLATION
     Route: 048
     Dates: start: 20071112, end: 20071117
  2. DIGOXIN [Interacting]
     Indication: ATRIAL FIBRILLATION
     Route: 048
     Dates: start: 20071112, end: 20071117
  3. DIGOXIN [Interacting]
     Route: 048
     Dates: start: 20071112, end: 20071117
  4. TIMOSAN [Concomitant]
     Route: 047
  5. LAKTULOSE [Concomitant]
  6. FURIX [Concomitant]
     Route: 048
  7. TROMBYL [Concomitant]
  8. VAGIFEM [Concomitant]
  9. IDEOS [Concomitant]
     Dosage: 500 MG/400 IE

REACTIONS (5)
  - BRADYCARDIA [None]
  - DIZZINESS [None]
  - DRUG THERAPEUTIC INCOMPATIBILITY [None]
  - FATIGUE [None]
  - THERAPEUTIC AGENT TOXICITY [None]
